FAERS Safety Report 24326498 (Version 2)
Quarter: 2024Q3

REPORT INFORMATION
  Report Type: Report from Study
  Country: CN (occurrence: CN)
  Receive Date: 20240917
  Receipt Date: 20240927
  Transmission Date: 20241017
  Serious: Yes (Death)
  Sender: CHIESI
  Company Number: CN-CHIESI-2024CHF06010

PATIENT
  Sex: Male

DRUGS (2)
  1. CUROSURF [Suspect]
     Active Substance: PORACTANT ALFA
     Indication: Neonatal respiratory distress syndrome
     Dosage: 200 MILLIGRAM/KILOGRAM
  2. CAFFEINE [Concomitant]
     Active Substance: CAFFEINE
     Indication: Product used for unknown indication
     Dosage: UNK

REACTIONS (1)
  - Ill-defined disorder [Fatal]
